FAERS Safety Report 12493051 (Version 1)
Quarter: 2016Q2

REPORT INFORMATION
  Report Type: Report from Study
  Country: JP (occurrence: JP)
  Receive Date: 20160623
  Receipt Date: 20160623
  Transmission Date: 20160815
  Serious: Yes (Hospitalization, Other)
  Sender: FDA-Public Use
  Company Number: JP-ELI_LILLY_AND_COMPANY-JP201503002084

PATIENT
  Sex: Female

DRUGS (1)
  1. FORTEO [Suspect]
     Active Substance: TERIPARATIDE
     Indication: PRODUCT USED FOR UNKNOWN INDICATION
     Dosage: UNK
     Route: 058
     Dates: start: 201410, end: 201506

REACTIONS (6)
  - Cardiac failure [Unknown]
  - Decreased appetite [Unknown]
  - Oedema peripheral [Unknown]
  - Anaemia [Unknown]
  - Renal impairment [Unknown]
  - Blood uric acid increased [Unknown]
